FAERS Safety Report 14528400 (Version 1)
Quarter: 2018Q1

REPORT INFORMATION
  Report Type: Spontaneous
  Country: NZ (occurrence: NZ)
  Receive Date: 20180214
  Receipt Date: 20180214
  Transmission Date: 20180509
  Serious: Yes (Death, Hospitalization, Other)
  Sender: FDA-Public Use
  Company Number: NZ-ASTRAZENECA-2018SE18219

PATIENT
  Age: 70 Year
  Sex: Female

DRUGS (1)
  1. BRILINTA [Suspect]
     Active Substance: TICAGRELOR
     Dosage: 90
     Route: 048

REACTIONS (2)
  - Acute myocardial infarction [Unknown]
  - Haemorrhage intracranial [Fatal]
